FAERS Safety Report 9626686 (Version 2)
Quarter: 2013Q4

REPORT INFORMATION
  Report Type: Spontaneous
  Country: US (occurrence: US)
  Receive Date: 20131016
  Receipt Date: 20131028
  Transmission Date: 20140711
  Serious: No
  Sender: FDA-Public Use
  Company Number: US-PFIZER INC-2013293372

PATIENT
  Age: 35 Year
  Sex: Female
  Weight: 68.03 kg

DRUGS (1)
  1. ADVIL [Suspect]
     Indication: HEADACHE
     Dosage: UNK, AS NEEDED
     Dates: start: 201309

REACTIONS (2)
  - Dyspepsia [Recovered/Resolved]
  - Foreign body [Recovered/Resolved]
